FAERS Safety Report 7041670-1 (Version None)
Quarter: 2010Q4

REPORT INFORMATION
  Report Type: 
  Country: None (occurrence: None)
  Receive Date: 20101013
  Receipt Date: 20101007
  Transmission Date: 20110411
  Serious: Yes (Other)
  Sender: FDA-Public Use
  Company Number: DZ-ROCHE-731338

PATIENT
  Age: 34 Year
  Sex: Female

DRUGS (2)
  1. HERCEPTIN [Suspect]
     Indication: BREAST CANCER
     Dosage: FREQUENCY: 6 CURES.
     Route: 042
     Dates: start: 20100101, end: 20100701
  2. ANTHRACYCLINE NOS [Concomitant]
     Dosage: DRUG REPORTED: ANTHRACYCLINS.  FREQUENCY: 9 CURES.

REACTIONS (1)
  - EJECTION FRACTION DECREASED [None]
